FAERS Safety Report 10905439 (Version 1)
Quarter: 2015Q1

REPORT INFORMATION
  Report Type: Spontaneous
  Country: US (occurrence: US)
  Receive Date: 20150311
  Receipt Date: 20150311
  Transmission Date: 20150721
  Serious: No
  Sender: FDA-Public Use
  Company Number: US-PFIZER INC-2015077703

PATIENT
  Sex: Male

DRUGS (3)
  1. LYRICA [Suspect]
     Active Substance: PREGABALIN
     Indication: LUNG NEOPLASM MALIGNANT
     Dosage: 0.5 MG, UNK
  2. LYRICA [Suspect]
     Active Substance: PREGABALIN
     Indication: CARDIAC PACEMAKER INSERTION
  3. LYRICA [Suspect]
     Active Substance: PREGABALIN
     Indication: NEUROPATHY PERIPHERAL
     Dosage: 1 MG, 2X/DAY

REACTIONS (2)
  - Neuropathy peripheral [Unknown]
  - Disease progression [Unknown]
